FAERS Safety Report 10065419 (Version 2)
Quarter: 2014Q2

REPORT INFORMATION
  Report Type: Report from Study
  Country: FR (occurrence: FR)
  Receive Date: 20140408
  Receipt Date: 20140626
  Transmission Date: 20141212
  Serious: Yes (Death)
  Sender: FDA-Public Use
  Company Number: FR-GLAXOSMITHKLINE-B0981755A

PATIENT
  Age: 61 Year
  Sex: Male
  Weight: 80 kg

DRUGS (7)
  1. ZANAMIVIR [Suspect]
     Indication: H1N1 INFLUENZA
     Route: 042
     Dates: start: 20140218, end: 20140227
  2. OSELTAMIVIR [Concomitant]
     Indication: H1N1 INFLUENZA
     Dosage: 75MG TWICE PER DAY
     Route: 048
  3. FORTUM [Concomitant]
     Dosage: 8000MG PER DAY
     Route: 042
     Dates: start: 20140222, end: 20140228
  4. VANCOMYCINE [Concomitant]
     Dosage: 2000MG PER DAY
     Route: 042
     Dates: start: 20140218, end: 20140219
  5. TAZOCILLINE [Concomitant]
     Dosage: 12G PER DAY
     Route: 042
     Dates: start: 20140218, end: 20140219
  6. VFEND [Concomitant]
     Dosage: 400MG PER DAY
     Route: 048
     Dates: start: 20140219, end: 20140228
  7. CORDARONE [Concomitant]
     Dosage: 4TAB PER DAY
     Route: 048
     Dates: start: 20140214, end: 20140221

REACTIONS (3)
  - Multi-organ failure [Fatal]
  - Condition aggravated [Not Recovered/Not Resolved]
  - Septic shock [Fatal]
